FAERS Safety Report 25252994 (Version 3)
Quarter: 2025Q2

REPORT INFORMATION
  Report Type: Report from Study
  Country: US (occurrence: US)
  Receive Date: 20250430
  Receipt Date: 20250521
  Transmission Date: 20250717
  Serious: Yes (Other)
  Sender: ABBVIE
  Company Number: US-ABBVIE-6245714

PATIENT
  Age: 59 Year
  Sex: Female

DRUGS (1)
  1. SKYRIZI [Suspect]
     Active Substance: RISANKIZUMAB-RZAA
     Indication: Crohn^s disease
     Route: 058
     Dates: start: 20240918

REACTIONS (15)
  - Basal cell carcinoma [Unknown]
  - Squamous cell carcinoma of skin [Unknown]
  - Pharyngeal swelling [Recovering/Resolving]
  - Ear dryness [Not Recovered/Not Resolved]
  - Dysphagia [Recovering/Resolving]
  - Faecal calprotectin increased [Unknown]
  - Impaired healing [Unknown]
  - Diarrhoea [Not Recovered/Not Resolved]
  - Mental fatigue [Unknown]
  - Eczema [Unknown]
  - Drug ineffective [Unknown]
  - Inflammatory marker increased [Not Recovered/Not Resolved]
  - Dermatitis [Not Recovered/Not Resolved]
  - Colitis [Not Recovered/Not Resolved]
  - Dermatitis [Unknown]

NARRATIVE: CASE EVENT DATE: 20240101
